FAERS Safety Report 8815895 (Version 2)
Quarter: 2014Q3

REPORT INFORMATION
  Report Type: Report from Study
  Country: US (occurrence: US)
  Receive Date: 20120928
  Receipt Date: 20140826
  Transmission Date: 20150326
  Serious: Yes (Death, Other)
  Sender: FDA-Public Use
  Company Number: US-ROCHE-1126159

PATIENT
  Sex: Male
  Weight: 84 kg

DRUGS (3)
  1. AVASTIN [Suspect]
     Active Substance: BEVACIZUMAB
     Indication: MALIGNANT URINARY TRACT NEOPLASM
     Route: 042
  2. XELODA [Suspect]
     Active Substance: CAPECITABINE
     Indication: PRODUCT USED FOR UNKNOWN INDICATION
     Route: 065
  3. AVASTIN [Suspect]
     Active Substance: BEVACIZUMAB
     Indication: METASTATIC RENAL CELL CARCINOMA

REACTIONS (8)
  - Off label use [Unknown]
  - Metastases to adrenals [Unknown]
  - Death [Fatal]
  - Metastases to bladder [Unknown]
  - Renal failure [Unknown]
  - Metastases to heart [Unknown]
  - Osteolysis [Unknown]
  - Disease progression [Unknown]
